FAERS Safety Report 6029771-8 (Version None)
Quarter: 2008Q4

REPORT INFORMATION
  Report Type: 
  Country: None (occurrence: None)
  Receive Date: 20081222
  Receipt Date: 20080925
  Transmission Date: 20090506
  Serious: No
  Sender: FDA-Public Use
  Company Number: US-WYE-H06146508

PATIENT
  Age: 40 Year
  Sex: Female
  Weight: 53.57 kg

DRUGS (5)
  1. PRISTIQ [Suspect]
     Indication: DEPRESSION
     Dosage: STARTED TAPERING BY EVERY OTHER DAY DOSING, THEN EVERY 2 DAYS : 50 MG 1X PER 1 DAY, ORAL
     Route: 048
     Dates: start: 20080101, end: 20080922
  2. PRISTIQ [Suspect]
     Indication: FRUSTRATION
     Dosage: STARTED TAPERING BY EVERY OTHER DAY DOSING, THEN EVERY 2 DAYS : 50 MG 1X PER 1 DAY, ORAL
     Route: 048
     Dates: start: 20080101, end: 20080922
  3. PRISTIQ [Suspect]
     Indication: DEPRESSION
     Dosage: STARTED TAPERING BY EVERY OTHER DAY DOSING, THEN EVERY 2 DAYS : 50 MG 1X PER 1 DAY, ORAL
     Route: 048
     Dates: start: 20080801
  4. PRISTIQ [Suspect]
     Indication: FRUSTRATION
     Dosage: STARTED TAPERING BY EVERY OTHER DAY DOSING, THEN EVERY 2 DAYS : 50 MG 1X PER 1 DAY, ORAL
     Route: 048
     Dates: start: 20080801
  5. ADDERALL 10 [Concomitant]

REACTIONS (9)
  - BLOOD PRESSURE INCREASED [None]
  - CRYING [None]
  - DIZZINESS [None]
  - DRUG INEFFECTIVE [None]
  - DRUG WITHDRAWAL SYNDROME [None]
  - HEART RATE INCREASED [None]
  - IRRITABILITY [None]
  - NAUSEA [None]
  - PAIN [None]
